FAERS Safety Report 6188327-7 (Version None)
Quarter: 2009Q2

REPORT INFORMATION
  Report Type: 
  Country: None (occurrence: None)
  Receive Date: 20090513
  Receipt Date: 20090507
  Transmission Date: 20091009
  Serious: No
  Sender: FDA-Public Use
  Company Number: US-JNJFOC-20090501916

PATIENT
  Sex: Male
  Weight: 74.39 kg

DRUGS (6)
  1. FENTANYL TRANSDERMAL SYSTEM [Suspect]
     Route: 062
  2. FENTANYL TRANSDERMAL SYSTEM [Suspect]
     Indication: BACK PAIN
     Dosage: 100 + 75 MCG PATCHES
     Route: 062
  3. CONCERTA [Concomitant]
     Indication: SOMNOLENCE
     Route: 048
  4. DIAZEPAM [Concomitant]
     Indication: NEUROPATHY PERIPHERAL
     Dosage: AS NEEDED
     Route: 048
  5. MORPHINE [Concomitant]
     Indication: PAIN
     Route: 048
  6. OMEPRAZOLE [Concomitant]
     Indication: GASTRIC DISORDER
     Route: 048

REACTIONS (5)
  - CHILLS [None]
  - DIARRHOEA [None]
  - INAPPROPRIATE SCHEDULE OF DRUG ADMINISTRATION [None]
  - TREATMENT NONCOMPLIANCE [None]
  - VOMITING [None]
